FAERS Safety Report 10197198 (Version 2)
Quarter: 2014Q3

REPORT INFORMATION
  Report Type: Spontaneous
  Country: US (occurrence: US)
  Receive Date: 20140527
  Receipt Date: 20140721
  Transmission Date: 20150326
  Serious: Yes (Hospitalization)
  Sender: FDA-Public Use
  Company Number: US-GLAXOSMITHKLINE-A1073781A

PATIENT
  Age: 79 Year
  Sex: Female

DRUGS (14)
  1. OXYGEN. [Concomitant]
     Active Substance: OXYGEN
  2. LOSARTAN [Concomitant]
     Active Substance: LOSARTAN
  3. CALCIUM [Concomitant]
     Active Substance: CALCIUM
  4. IRON [Concomitant]
     Active Substance: IRON
  5. ASPIRIN. [Concomitant]
     Active Substance: ASPIRIN
  6. ADVAIR HFA [Suspect]
     Active Substance: FLUTICASONE PROPIONATE\SALMETEROL XINAFOATE
     Indication: CHRONIC OBSTRUCTIVE PULMONARY DISEASE
     Dosage: 1PUFF TWICE PER DAY
     Route: 055
  7. SPIRIVA [Concomitant]
     Active Substance: TIOTROPIUM BROMIDE MONOHYDRATE
  8. ICAPS [Concomitant]
     Active Substance: MINERALS\VITAMINS
  9. PROVENTIL [Concomitant]
     Active Substance: ALBUTEROL
  10. LEVOTHYROXINE [Concomitant]
     Active Substance: LEVOTHYROXINE
  11. VITAMIN D [Concomitant]
     Active Substance: CHOLECALCIFEROL
  12. NITROSTAT [Concomitant]
     Active Substance: NITROGLYCERIN
  13. SIMVASTATIN. [Concomitant]
     Active Substance: SIMVASTATIN
  14. CARVEDILOL. [Suspect]
     Active Substance: CARVEDILOL
     Indication: HYPERTENSION
     Dosage: 12.5MG TWICE PER DAY
     Route: 048

REACTIONS (5)
  - Nerve injury [Unknown]
  - Benign tumour excision [Unknown]
  - Off label use [Unknown]
  - Benign salivary gland neoplasm [Unknown]
  - Hypoaesthesia [Unknown]

NARRATIVE: CASE EVENT DATE: 2013
